FAERS Safety Report 24342961 (Version 1)
Quarter: 2024Q3

REPORT INFORMATION
  Report Type: Spontaneous
  Country: JP (occurrence: JP)
  Receive Date: 20240920
  Receipt Date: 20240920
  Transmission Date: 20241017
  Serious: Yes (Other)
  Sender: BAYER
  Company Number: JP-BAYER-2024A094427

PATIENT
  Age: 41 Year
  Sex: Female

DRUGS (1)
  1. YAZ [Suspect]
     Active Substance: DROSPIRENONE\ETHINYL ESTRADIOL
     Indication: Dysmenorrhoea
     Dosage: UNK
     Dates: start: 20201021

REACTIONS (4)
  - Blood copper abnormal [Unknown]
  - Stomatitis [Recovering/Resolving]
  - Maternal exposure during pregnancy [None]
  - Contraindicated product administered [None]

NARRATIVE: CASE EVENT DATE: 20240501
